FAERS Safety Report 5200460-2 (Version None)
Quarter: 2007Q1

REPORT INFORMATION
  Report Type: 
  Country: None (occurrence: None)
  Receive Date: 20070105
  Receipt Date: 20070104
  Transmission Date: 20070707
  Serious: Yes (Disabling)
  Sender: FDA-Public Use
  Company Number: FR-MERCK-0608FRA00038

PATIENT
  Age: 45 Year
  Sex: Female
  Weight: 50 kg

DRUGS (3)
  1. NOROXIN [Suspect]
     Indication: URINARY TRACT INFECTION
     Route: 048
     Dates: start: 20060723, end: 20060727
  2. DIOSMIN [Concomitant]
     Indication: VENOUS INSUFFICIENCY
     Route: 048
  3. FERROUS SULFATE AND FOLIC ACID [Concomitant]
     Indication: ANAEMIA
     Route: 048

REACTIONS (2)
  - MUSCLE SPASMS [None]
  - MYALGIA [None]
